FAERS Safety Report 10136309 (Version 2)
Quarter: 2014Q2

REPORT INFORMATION
  Report Type: Spontaneous
  Country: AU (occurrence: AU)
  Receive Date: 20140429
  Receipt Date: 20140516
  Transmission Date: 20141212
  Serious: Yes (Other)
  Sender: FDA-Public Use
  Company Number: AU-CELGENEUS-008-21880-14042720

PATIENT
  Sex: Male

DRUGS (1)
  1. REVLIMID [Suspect]
     Indication: PLASMA CELL MYELOMA
     Dosage: 11.25 MILLIGRAM
     Route: 048
     Dates: start: 201102

REACTIONS (3)
  - Inguinal hernia [Unknown]
  - Neutropenia [Recovered/Resolved]
  - Urinary tract infection pseudomonal [Unknown]
